FAERS Safety Report 20248108 (Version 1)
Quarter: 2021Q4

REPORT INFORMATION
  Report Type: Spontaneous
  Country: RU (occurrence: RU)
  Receive Date: 20211229
  Receipt Date: 20211229
  Transmission Date: 20220303
  Serious: Yes (Other)
  Sender: FDA-Public Use
  Company Number: RU-SA-2021SA431970

PATIENT
  Age: 7 Year
  Sex: Female
  Weight: 24 kg

DRUGS (5)
  1. CLOBAZAM [Suspect]
     Active Substance: CLOBAZAM
     Indication: Partial seizures
     Dosage: 2.5 MG, TID
     Route: 048
     Dates: start: 20211214, end: 20211216
  2. CLOBAZAM [Suspect]
     Active Substance: CLOBAZAM
     Route: 048
  3. CLOBAZAM [Suspect]
     Active Substance: CLOBAZAM
     Route: 048
  4. TRILEPTAL [Concomitant]
     Active Substance: OXCARBAZEPINE
     Indication: Partial seizures
     Dosage: 5 ML, BID
     Route: 048
     Dates: start: 20191105
  5. VALPROIC ACID [Concomitant]
     Active Substance: VALPROIC ACID
     Indication: Partial seizures
     Dosage: 250 MG, BID
     Route: 048
     Dates: start: 20140808

REACTIONS (1)
  - Drug ineffective [Unknown]

NARRATIVE: CASE EVENT DATE: 20211215
